FAERS Safety Report 16924120 (Version 1)
Quarter: 2019Q4

REPORT INFORMATION
  Report Type: Spontaneous
  Country: US (occurrence: US)
  Receive Date: 20191015
  Receipt Date: 20191015
  Transmission Date: 20200122
  Serious: Yes (Other)
  Sender: FDA-Public Use
  Company Number: None

PATIENT
  Age: 54 Year
  Sex: Male
  Weight: 78 kg

DRUGS (9)
  1. OMEPRAZOLE 40 DR CAP QD [Concomitant]
  2. CEFEPIME [Suspect]
     Active Substance: CEFEPIME HYDROCHLORIDE
     Indication: CELLULITIS
     Route: 017
     Dates: start: 20190920, end: 20191014
  3. LEVOTHYROXINE 50 MG TAB QD [Concomitant]
  4. PRAVASTATIN 80 MG TAB QD [Concomitant]
  5. ACETAMINOPHEN 1000 MG TAB PRN [Concomitant]
  6. ENOXAPARIN 40 MG SUBQ QD [Concomitant]
     Dates: start: 20190921
  7. PREDNISONE 5 MG TAB QD [Concomitant]
  8. METRONIDAZOLE 500 MG TAB TID [Suspect]
     Active Substance: METRONIDAZOLE
     Dates: start: 20190920, end: 20191014
  9. NORTRIPTYLINE 25 MG CAP QD [Concomitant]

REACTIONS (1)
  - Neutropenia [None]

NARRATIVE: CASE EVENT DATE: 20191014
